FAERS Safety Report 4338741-7 (Version None)
Quarter: 2004Q2

REPORT INFORMATION
  Report Type: 
  Country: None (occurrence: None)
  Receive Date: 20040409
  Receipt Date: 20040329
  Transmission Date: 20050107
  Serious: Yes (Other)
  Sender: FDA-Public Use
  Company Number: GB-JNJFOC-20040306318

PATIENT

DRUGS (1)
  1. RISPERDAL [Suspect]

REACTIONS (1)
  - RESPIRATORY DEPRESSION [None]
